FAERS Safety Report 5721741-X (Version None)
Quarter: 2008Q2

REPORT INFORMATION
  Report Type: 
  Country: None (occurrence: None)
  Receive Date: 20080429
  Receipt Date: 20070430
  Transmission Date: 20081010
  Serious: Yes (Other)
  Sender: FDA-Public Use
  Company Number: US-ASTRAZENECA-2007UW08826

PATIENT
  Age: 47 Year
  Sex: Female
  Weight: 65.8 kg

DRUGS (4)
  1. NEXIUM [Suspect]
     Indication: PAIN
     Route: 048
     Dates: start: 20030501
  2. LORAZEPAM [Concomitant]
  3. NASONEX [Concomitant]
  4. WELLBUTRIN [Concomitant]

REACTIONS (1)
  - ANAEMIA [None]
